FAERS Safety Report 12980198 (Version 1)
Quarter: 2016Q4

REPORT INFORMATION
  Report Type: Spontaneous
  Country: US (occurrence: US)
  Receive Date: 20161128
  Receipt Date: 20161128
  Transmission Date: 20170207
  Serious: Yes (Other)
  Sender: FDA-Public Use
  Company Number: US-INDIVIOR LIMITED-INDV-096818-2016

PATIENT

DRUGS (2)
  1. BUPRENORPHINE IMPLANT [Suspect]
     Active Substance: BUPRENORPHINE
     Indication: DRUG DEPENDENCE
     Dosage: 4 (80 MG EACH) SIMULTANEOUSLY PLACED 26?2.5-MM BUPRENORPHINE IMPLANTS
     Route: 059
  2. BUPRENORPHINE. [Suspect]
     Active Substance: BUPRENORPHINE
     Indication: DRUG DEPENDENCE
     Dosage: 8 MG PER DAY OR LESS THAN 8 MG DAILY
     Route: 060

REACTIONS (2)
  - Bipolar I disorder [Unknown]
  - Condition aggravated [Unknown]
